FAERS Safety Report 5933991-8 (Version None)
Quarter: 2008Q4

REPORT INFORMATION
  Report Type: 
  Country: None (occurrence: None)
  Receive Date: 20081028
  Receipt Date: 20081028
  Transmission Date: 20090506
  Serious: Yes (Hospitalization)
  Sender: FDA-Public Use
  Company Number: None

PATIENT
  Age: 5 Year
  Sex: Female
  Weight: 20.9018 kg

DRUGS (14)
  1. IRINOTECAN HYDROCHLORIDE [Suspect]
     Indication: NEUROBLASTOMA
     Dosage: 33 MG IVPB
     Route: 042
     Dates: start: 20080922, end: 20080926
  2. IRINOTECAN HYDROCHLORIDE [Suspect]
     Indication: NEUROBLASTOMA
     Dosage: 33 MG IVPB
     Route: 042
     Dates: start: 20081013, end: 20081017
  3. VELCADE [Suspect]
     Indication: NEUROBLASTOMA
     Dosage: 1 MG IVP
     Route: 042
     Dates: start: 20080922
  4. VELCADE [Suspect]
     Indication: NEUROBLASTOMA
     Dosage: 1 MG IVP
     Route: 042
     Dates: start: 20080925
  5. VELCADE [Suspect]
     Indication: NEUROBLASTOMA
     Dosage: 1 MG IVP
     Route: 042
     Dates: start: 20080929
  6. VELCADE [Suspect]
     Indication: NEUROBLASTOMA
     Dosage: 1 MG IVP
     Route: 042
     Dates: start: 20081013
  7. VELCADE [Suspect]
     Indication: NEUROBLASTOMA
     Dosage: 1 MG IVP
     Route: 042
     Dates: start: 20081016
  8. VELCADE [Suspect]
     Indication: NEUROBLASTOMA
     Dosage: 1 MG IVP
     Route: 042
     Dates: start: 20081020
  9. VELCADE [Suspect]
     Indication: NEUROBLASTOMA
     Dosage: 1 MG IVP
     Route: 042
     Dates: start: 20081023
  10. ZOFRAN [Concomitant]
  11. BACTRIM [Concomitant]
  12. OXYCODONE HCL [Concomitant]
  13. COLACE [Concomitant]
  14. MIRALAX [Concomitant]

REACTIONS (4)
  - INFECTION [None]
  - NEUTROPHIL COUNT DECREASED [None]
  - PYREXIA [None]
  - SWELLING FACE [None]
